FAERS Safety Report 4365467-6 (Version None)
Quarter: 2004Q2

REPORT INFORMATION
  Report Type: 
  Country: None (occurrence: None)
  Receive Date: 20040520
  Receipt Date: 20040511
  Transmission Date: 20050107
  Serious: Yes (Hospitalization)
  Sender: FDA-Public Use
  Company Number: US-JNJFOC-20040502303

PATIENT
  Sex: Male

DRUGS (2)
  1. REMICADE [Suspect]
     Indication: CROHN'S DISEASE
     Dosage: INTRAVENOUS
     Route: 042
     Dates: start: 20040405
  2. DEMEROL [Concomitant]

REACTIONS (4)
  - ARTHRALGIA [None]
  - INFUSION RELATED REACTION [None]
  - PAIN [None]
  - PYREXIA [None]
